FAERS Safety Report 7688272-1 (Version None)
Quarter: 2011Q3

REPORT INFORMATION
  Report Type: 
  Country: None (occurrence: None)
  Receive Date: 20110817
  Receipt Date: 20110809
  Transmission Date: 20111222
  Serious: Yes (Hospitalization)
  Sender: FDA-Public Use
  Company Number: US-SANOFI-AVENTIS-2011SA002387

PATIENT
  Age: 72 Year
  Sex: Female
  Weight: 61 kg

DRUGS (8)
  1. DILTIAZEM [Suspect]
     Route: 048
     Dates: end: 20101223
  2. ATENOLOL [Concomitant]
     Route: 065
  3. ACETYLSALICYLIC ACID SRT [Concomitant]
     Route: 048
  4. METOPROLOL TARTRATE [Suspect]
     Route: 048
     Dates: end: 20101223
  5. VITAMIN D [Concomitant]
     Dosage: DOSE:50000 UNIT(S)
  6. MULTAQ [Suspect]
     Dosage: RECEIVED 3 DOSES
     Route: 048
     Dates: start: 20101222, end: 20101228
  7. VICODIN [Concomitant]
     Indication: PAIN
     Dosage: 5/500MG 1-2 TABLETS 4-6 HOURS AS NEEDED FOR PAIN
  8. SYNTHROID [Concomitant]
     Route: 048

REACTIONS (6)
  - HYPERSENSITIVITY [None]
  - SWELLING [None]
  - PERICARDIAL EFFUSION [None]
  - ATRIAL FIBRILLATION [None]
  - URTICARIA [None]
  - PLEURAL EFFUSION [None]
